FAERS Safety Report 19950769 (Version 3)
Quarter: 2022Q4

REPORT INFORMATION
  Report Type: Report from Study
  Country: US (occurrence: US)
  Receive Date: 20211013
  Receipt Date: 20221027
  Transmission Date: 20230112
  Serious: Yes (Other)
  Sender: FDA-Public Use
  Company Number: US-KOREA IPSEN Pharma-2021-24685

PATIENT
  Age: 66 Year
  Sex: Male

DRUGS (5)
  1. SOMATULINE DEPOT [Suspect]
     Active Substance: LANREOTIDE ACETATE
     Indication: Carcinoid tumour of the small bowel
     Route: 058
     Dates: start: 201909
  2. SOMATULINE DEPOT [Suspect]
     Active Substance: LANREOTIDE ACETATE
     Indication: Carcinoid syndrome
     Route: 058
  3. SOMATULINE DEPOT [Suspect]
     Active Substance: LANREOTIDE ACETATE
     Route: 058
  4. XERMELO [Concomitant]
     Active Substance: TELOTRISTAT ETHYL
     Indication: Carcinoid tumour of the small bowel
  5. XERMELO [Concomitant]
     Active Substance: TELOTRISTAT ETHYL
     Indication: Carcinoid syndrome

REACTIONS (5)
  - Neuropathy peripheral [Recovered/Resolved]
  - Diarrhoea [Recovered/Resolved]
  - Heart rate decreased [Recovering/Resolving]
  - Blood glucose decreased [Recovered/Resolved]
  - Off label use [Unknown]
